FAERS Safety Report 8682449 (Version 3)
Quarter: 2013Q3

REPORT INFORMATION
  Report Type: Spontaneous
  Country: FR (occurrence: FR)
  Receive Date: 20120725
  Receipt Date: 20130822
  Transmission Date: 20140515
  Serious: Yes (Hospitalization)
  Sender: FDA-Public Use
  Company Number: FR-ABBOTT-12P-056-0958371-00

PATIENT
  Age: 31 Year
  Sex: Female

DRUGS (3)
  1. NORVIR [Suspect]
     Indication: PRODUCT USED FOR UNKNOWN INDICATION
     Dates: start: 201205, end: 20120608
  2. TRUVADA [Suspect]
     Indication: PRODUCT USED FOR UNKNOWN INDICATION
     Route: 065
     Dates: end: 20120608
  3. PREZISTA [Suspect]
     Indication: PRODUCT USED FOR UNKNOWN INDICATION
     Route: 065
     Dates: start: 201205, end: 20120608

REACTIONS (4)
  - Loss of consciousness [Recovering/Resolving]
  - Epilepsy [Not Recovered/Not Resolved]
  - Partial seizures [Not Recovered/Not Resolved]
  - Epilepsy [Not Recovered/Not Resolved]
